FAERS Safety Report 6963463-3 (Version None)
Quarter: 2010Q3

REPORT INFORMATION
  Report Type: 
  Country: None (occurrence: None)
  Receive Date: 20100902
  Receipt Date: 20100831
  Transmission Date: 20110219
  Serious: Yes (Other)
  Sender: FDA-Public Use
  Company Number: D0068742A

PATIENT
  Age: 50 Year
  Sex: Male

DRUGS (3)
  1. ZOFRAN [Suspect]
     Route: 048
  2. DOXYCYCLIN [Concomitant]
     Indication: BRUCELLOSIS
     Route: 065
  3. ANTIBIOTIC (UNKNOWN) [Concomitant]
     Indication: BRUCELLOSIS
     Route: 065

REACTIONS (1)
  - LIVER FUNCTION TEST ABNORMAL [None]
